FAERS Safety Report 9683418 (Version 2)
Quarter: 2013Q4

REPORT INFORMATION
  Report Type: Spontaneous
  Country: ZA (occurrence: ZA)
  Receive Date: 20131112
  Receipt Date: 20131126
  Transmission Date: 20140711
  Serious: Yes (Hospitalization, Other)
  Sender: FDA-Public Use
  Company Number: ZA-NOVOPROD-392057

PATIENT
  Age: 36 Year
  Sex: Female

DRUGS (4)
  1. PROTAPHANE FLEXPEN [Suspect]
     Indication: GESTATIONAL DIABETES
     Dosage: UNK
     Route: 065
     Dates: start: 201305
  2. NOVORAPID FLEXPEN [Suspect]
     Indication: GESTATIONAL DIABETES
     Dosage: UNK
     Route: 065
     Dates: start: 201305
  3. METFORMIN [Concomitant]
     Indication: DIABETES MELLITUS
     Dosage: UNK
     Dates: end: 20131029
  4. GLYCOMIN                           /00082702/ [Concomitant]
     Indication: DIABETES MELLITUS
     Dosage: UNK
     Dates: end: 20131029

REACTIONS (3)
  - Fall [Unknown]
  - Abortion spontaneous [Unknown]
  - Exposure during pregnancy [Unknown]
